FAERS Safety Report 23994527 (Version 1)
Quarter: 2024Q2

REPORT INFORMATION
  Report Type: Report from Study
  Country: AU (occurrence: AU)
  Receive Date: 20240620
  Receipt Date: 20240620
  Transmission Date: 20240716
  Serious: Yes (Hospitalization)
  Sender: FDA-Public Use
  Company Number: AU-MYLANLABS-2024M1054953

PATIENT

DRUGS (3)
  1. NAPROXEN [Suspect]
     Active Substance: NAPROXEN
     Indication: Product used for unknown indication
     Dosage: 4000 MILLIGRAM
     Route: 048
  2. DICLOFENAC [Suspect]
     Active Substance: DICLOFENAC
     Indication: Product used for unknown indication
     Dosage: 250 MILLIGRAM
     Route: 048
  3. ORPHENADRINE [Suspect]
     Active Substance: ORPHENADRINE
     Indication: Product used for unknown indication
     Dosage: UNK, SUSTAINED-RELEASE
     Route: 048

REACTIONS (8)
  - Poisoning deliberate [Unknown]
  - Intentional overdose [Unknown]
  - Seizure [Unknown]
  - Delirium [Unknown]
  - Tachycardia [Unknown]
  - Electrocardiogram QRS complex prolonged [Recovered/Resolved]
  - Somnolence [Unknown]
  - Mydriasis [Unknown]
